FAERS Safety Report 6932033-5 (Version None)
Quarter: 2010Q3

REPORT INFORMATION
  Report Type: 
  Country: None (occurrence: None)
  Receive Date: 20100819
  Receipt Date: 20100811
  Transmission Date: 20110219
  Serious: Yes (Other)
  Sender: FDA-Public Use
  Company Number: US-ASTRAZENECA-2010SE36093

PATIENT
  Sex: Male

DRUGS (4)
  1. NEXIUM [Suspect]
     Route: 048
  2. NEXIUM [Suspect]
     Route: 048
  3. CRESTOR [Suspect]
     Route: 048
     Dates: end: 20100518
  4. PREDNISONE [Concomitant]

REACTIONS (2)
  - AUTOIMMUNE HEPATITIS [None]
  - HEPATIC ENZYME INCREASED [None]
